FAERS Safety Report 24276219 (Version 2)
Quarter: 2024Q4

REPORT INFORMATION
  Report Type: Spontaneous
  Country: CA (occurrence: CA)
  Receive Date: 20240903
  Receipt Date: 20241001
  Transmission Date: 20250115
  Serious: Yes (Other)
  Sender: CELLTRION
  Company Number: CA-PFIZER INC-202200707298

PATIENT

DRUGS (20)
  1. INFLECTRA [Suspect]
     Active Substance: INFLIXIMAB-DYYB
     Indication: Colitis ulcerative
     Dosage: 300 MG, RECEIVED IN HOSPITAL
     Route: 042
     Dates: start: 20220508, end: 20220508
  2. INFLECTRA [Suspect]
     Active Substance: INFLIXIMAB-DYYB
     Dosage: 300 MG, RECEIVED IN HOSPITAL
     Route: 042
     Dates: start: 20220510, end: 20220510
  3. INFLECTRA [Suspect]
     Active Substance: INFLIXIMAB-DYYB
     Dosage: 600 MG, WEEK 2 AT 600 MG, THEN 300 MG IV EVERY 4 WEEKS STARTING AT WEEK 6
     Route: 042
     Dates: start: 20220524, end: 20220524
  4. INFLECTRA [Suspect]
     Active Substance: INFLIXIMAB-DYYB
     Dosage: 1 DF, WEEK 2 AT 600 MG, THEN 300 MG IV EVERY 4 WEEKS STARTING AT WEEK 6
     Route: 042
     Dates: start: 20220524
  5. INFLECTRA [Suspect]
     Active Substance: INFLIXIMAB-DYYB
     Dosage: 600 MG, WEEK 2 AT 600 MG, THEN 300 MG IV EVERY 4 WEEKS STARTING AT WEEK 6
     Route: 042
     Dates: start: 20220715
  6. INFLECTRA [Suspect]
     Active Substance: INFLIXIMAB-DYYB
     Dosage: 300 MG, EVERY 4 WEEKS STARTING AT WEEK 6
     Route: 042
     Dates: start: 20220910, end: 20220910
  7. INFLECTRA [Suspect]
     Active Substance: INFLIXIMAB-DYYB
     Dosage: 1 DF, WEEK 2 AT 600 MG, THEN 300 MG IV EVERY 4 WEEKS STARTING AT WEEK 6
     Route: 042
     Dates: start: 20221005, end: 20221005
  8. INFLECTRA [Suspect]
     Active Substance: INFLIXIMAB-DYYB
     Dosage: 300 MG, EVERY 4 WEEKS
     Route: 042
     Dates: start: 20230225
  9. INFLECTRA [Suspect]
     Active Substance: INFLIXIMAB-DYYB
     Dosage: 300 MG, EVERY 4 WEEKS
     Route: 042
     Dates: start: 20230822
  10. INFLECTRA [Suspect]
     Active Substance: INFLIXIMAB-DYYB
     Dosage: 300MG, EVERY 4 WEEKS
     Route: 042
     Dates: start: 20230923
  11. INFLECTRA [Suspect]
     Active Substance: INFLIXIMAB-DYYB
     Dosage: 300MG, EVERY 4 WEEKS(1 DF, WEEK 2 AT 600 MG, THEN 300 MG IV EVERY 4 WEEKS STARTING AT WEEK 6)
     Route: 042
     Dates: start: 20240727
  12. INFLECTRA [Suspect]
     Active Substance: INFLIXIMAB-DYYB
     Dosage: 300MG, EVERY 4 WEEKS(1 DF, WEEK 2 AT 600 MG, THEN 300 MG IV EVERY 4 WEEKS STARTING AT WEEK 6)
     Route: 042
     Dates: start: 20240824
  13. INFLECTRA [Suspect]
     Active Substance: INFLIXIMAB-DYYB
     Dosage: 300MG, EVERY 4 WEEKS (WEEK 2 AT 600 MG, THEN 300 MG IV EVERY 4 WEEKS STARTING AT WEEK 6   )
     Route: 042
     Dates: start: 20240921
  14. BENADRYL [Concomitant]
     Active Substance: DIPHENHYDRAMINE HYDROCHLORIDE
     Indication: Premedication
     Dosage: 25 MG BEFORE INFUSION
     Route: 042
  15. CALCIUM [Concomitant]
     Active Substance: CALCIUM
     Dosage: UNK
  16. METOCLOPRAMIDE HYDROCHLORIDE [Concomitant]
     Active Substance: METOCLOPRAMIDE HYDROCHLORIDE
     Dosage: 10 MG IN 100ML OVER 20MIN
     Route: 042
  17. SODIUM CHLORIDE [Concomitant]
     Active Substance: SODIUM CHLORIDE
     Dosage: 500 ML OVER 30MIN
  18. PREDNISONE [Concomitant]
     Active Substance: PREDNISONE
     Dosage: UNK
  19. SOLU-CORTEF [Concomitant]
     Active Substance: HYDROCORTISONE SODIUM SUCCINATE
     Indication: Premedication
     Dosage: 200 MG BEFORE INFUSION
     Route: 042
  20. CHOLECALCIFEROL [Concomitant]
     Active Substance: CHOLECALCIFEROL
     Dosage: UNK

REACTIONS (22)
  - Psoriasis [Not Recovered/Not Resolved]
  - Chest discomfort [Recovered/Resolved]
  - Nasal congestion [Not Recovered/Not Resolved]
  - Panic reaction [Unknown]
  - Injection site bruising [Unknown]
  - Arthralgia [Recovering/Resolving]
  - Nasopharyngitis [Not Recovered/Not Resolved]
  - Headache [Not Recovered/Not Resolved]
  - Pyrexia [Not Recovered/Not Resolved]
  - Hypoaesthesia [Unknown]
  - Pain in extremity [Unknown]
  - Weight increased [Unknown]
  - Hypotension [Unknown]
  - Fatigue [Not Recovered/Not Resolved]
  - Pallor [Not Recovered/Not Resolved]
  - Condition aggravated [Recovered/Resolved]
  - Nausea [Unknown]
  - Abdominal pain upper [Unknown]
  - Off label use [Unknown]
  - Off label use [Unknown]
  - Off label use [Unknown]
  - Intentional product use issue [Unknown]

NARRATIVE: CASE EVENT DATE: 20220101
